FAERS Safety Report 6763261-X (Version None)
Quarter: 2010Q2

REPORT INFORMATION
  Report Type: 
  Country: None (occurrence: None)
  Receive Date: 20100610
  Receipt Date: 20100527
  Transmission Date: 20101027
  Serious: Yes (Hospitalization)
  Sender: FDA-Public Use
  Company Number: BE-RANBAXY-2010RR-34297

PATIENT
  Age: 52 Year
  Sex: Male

DRUGS (1)
  1. VERAPAMIL [Suspect]
     Indication: HYPERTROPHIC CARDIOMYOPATHY
     Dosage: 120 MG, SINGLE

REACTIONS (4)
  - ANURIA [None]
  - ATRIOVENTRICULAR BLOCK FIRST DEGREE [None]
  - CIRCULATORY COLLAPSE [None]
  - METABOLIC ACIDOSIS [None]
